FAERS Safety Report 4710272-1 (Version None)
Quarter: 2005Q3

REPORT INFORMATION
  Report Type: 
  Country: None (occurrence: None)
  Receive Date: 20050711
  Receipt Date: 20050628
  Transmission Date: 20060218
  Serious: Yes (Death, Other)
  Sender: FDA-Public Use
  Company Number: US-JNJFOC-20031203206

PATIENT
  Sex: Male

DRUGS (32)
  1. REMICADE [Suspect]
     Route: 042
  2. REMICADE [Suspect]
     Route: 042
  3. REMICADE [Suspect]
     Route: 042
  4. REMICADE [Suspect]
     Route: 042
  5. REMICADE [Suspect]
     Route: 042
  6. REMICADE [Suspect]
     Indication: RHEUMATOID ARTHRITIS
     Route: 042
  7. METHOTREXATE [Suspect]
     Indication: RHEUMATOID ARTHRITIS
  8. PREDNISONE TAB [Concomitant]
     Indication: RHEUMATOID ARTHRITIS
  9. SULFASALAZINE [Concomitant]
     Indication: RHEUMATOID ARTHRITIS
     Dosage: 1000 MG EVERY MORNING; 500 MG EVERY NIGHT.
  10. CELEBREX [Concomitant]
  11. ACETAMINOPHEN [Concomitant]
     Dosage: EVERY 4-6 HOURS
  12. DIPHENHYDRAMINE [Concomitant]
  13. DIPHENHYDRAMINE [Concomitant]
  14. DIPHENHYDRAMINE [Concomitant]
     Indication: PREMEDICATION
     Dosage: HS
  15. POTASSIUM CHLORIDE [Concomitant]
  16. ATENOLOL [Concomitant]
  17. ATENOLOL [Concomitant]
  18. VANCENASE [Concomitant]
  19. ARTIFICIAL TEARS [Concomitant]
  20. FERROUS GLUCONATE [Concomitant]
  21. OSCAL-D [Concomitant]
  22. NITROGLYCERIN [Concomitant]
  23. ISOSORBIDE [Concomitant]
  24. ISOSORBIDE [Concomitant]
  25. HYDRALAZINE [Concomitant]
  26. HYDRALAZINE [Concomitant]
  27. LASIX [Concomitant]
  28. LASIX [Concomitant]
  29. SIMVASTATIN [Concomitant]
  30. ALBUTEROL [Concomitant]
     Route: 055
  31. SPIRONOLACTONE [Concomitant]
     Route: 049
  32. DIGOXIN [Concomitant]
     Dosage: EVERY OTHER DAY

REACTIONS (5)
  - CARDIAC FAILURE CONGESTIVE [None]
  - INFECTION [None]
  - PULMONARY OEDEMA [None]
  - RENAL FAILURE CHRONIC [None]
  - URINARY TRACT INFECTION [None]
